FAERS Safety Report 6078129-4 (Version None)
Quarter: 2009Q1

REPORT INFORMATION
  Report Type: 
  Country: None (occurrence: None)
  Receive Date: 20090213
  Receipt Date: 20090205
  Transmission Date: 20090719
  Serious: Yes (Hospitalization, Other)
  Sender: FDA-Public Use
  Company Number: DE-ROXANE LABORATORIES, INC.-2009-RO-00121RO

PATIENT
  Age: 31 Year
  Sex: Male

DRUGS (3)
  1. COCAINE [Suspect]
     Dosage: 2G
     Route: 045
  2. COCAINE [Suspect]
     Dosage: 1G
     Route: 045
  3. DISULFIRAM [Suspect]
     Indication: DRUG DEPENDENCE
     Dosage: 250MG

REACTIONS (13)
  - ANXIETY [None]
  - DELUSION [None]
  - DRUG ABUSE [None]
  - DRUG DEPENDENCE [None]
  - DRUG INTERACTION [None]
  - FATIGUE [None]
  - HYPERACUSIS [None]
  - ILLUSION [None]
  - INITIAL INSOMNIA [None]
  - INSOMNIA [None]
  - PARAESTHESIA [None]
  - PARANOIA [None]
  - PSYCHIATRIC SYMPTOM [None]
